FAERS Safety Report 4515145-5 (Version None)
Quarter: 2004Q4

REPORT INFORMATION
  Report Type: 
  Country: None (occurrence: None)
  Receive Date: 20041130
  Receipt Date: 20041130
  Transmission Date: 20050328
  Serious: Yes (Hospitalization)
  Sender: FDA-Public Use
  Company Number: None

PATIENT
  Sex: Male

DRUGS (14)
  1. NPH INSULIN [Suspect]
     Indication: DIABETES MELLITUS
     Dosage: 60 UNITS  BID  SUBCUTANEO
     Route: 058
  2. HUMALOG [Suspect]
     Indication: DIABETES MELLITUS
     Dosage: 16 UNITS   BID   SUBCUTANEO
     Route: 058
  3. PHYTONADIONE [Concomitant]
  4. TIMOLOL MALEATE [Concomitant]
  5. FUROSEMIDE [Concomitant]
  6. SPIRONOLACTONE [Concomitant]
  7. BACLOFEN [Concomitant]
  8. FOLIC ACID [Concomitant]
  9. ISOSORBIDE MONONITRATE [Concomitant]
  10. MAGNESIUM OXIDE [Concomitant]
  11. OMEPRAZOLE [Concomitant]
  12. PROPRANOLOL [Concomitant]
  13. THIAMINE [Concomitant]
  14. MULTI-VITAMIN [Concomitant]

REACTIONS (3)
  - BLOOD GLUCOSE DECREASED [None]
  - COMA [None]
  - MEDICATION ERROR [None]
